FAERS Safety Report 24019752 (Version 1)
Quarter: 2024Q2

REPORT INFORMATION
  Report Type: Spontaneous
  Country: GR (occurrence: GR)
  Receive Date: 20240627
  Receipt Date: 20240627
  Transmission Date: 20240716
  Serious: Yes (Hospitalization, Other)
  Sender: FDA-Public Use
  Company Number: GR-BRISTOL-MYERS SQUIBB COMPANY-2024-101773

PATIENT
  Age: 77 Year
  Sex: Female

DRUGS (1)
  1. ELIQUIS [Suspect]
     Active Substance: APIXABAN
     Indication: Atrial fibrillation
     Dates: start: 2021

REACTIONS (7)
  - Peripheral swelling [Recovering/Resolving]
  - Treatment noncompliance [Unknown]
  - Arthralgia [Unknown]
  - Neck pain [Unknown]
  - Paralysis [Unknown]
  - Dysstasia [Unknown]
  - Skin mass [Unknown]

NARRATIVE: CASE EVENT DATE: 20240301
